FAERS Safety Report 15464967 (Version 1)
Quarter: 2018Q4

REPORT INFORMATION
  Report Type: Spontaneous
  Country: ZA (occurrence: ZA)
  Receive Date: 20181004
  Receipt Date: 20181004
  Transmission Date: 20190204
  Serious: Yes (Death, Other)
  Sender: FDA-Public Use
  Company Number: ZA-BAYER-2018-181464

PATIENT
  Age: 35 Year
  Sex: Male

DRUGS (13)
  1. IMIPENEM [Suspect]
     Active Substance: IMIPENEM
     Indication: PULMONARY TUBERCULOSIS
     Dosage: 1.5 G, BID
     Route: 042
     Dates: start: 20180727
  2. DALMANE [Suspect]
     Active Substance: FLURAZEPAM HYDROCHLORIDE
     Indication: PULMONARY TUBERCULOSIS
     Dosage: 100 MG, BID
     Route: 048
     Dates: start: 20180727
  3. RIFABUTIN. [Suspect]
     Active Substance: RIFABUTIN
     Indication: PULMONARY TUBERCULOSIS
     Dosage: 150 MG, QD
     Route: 048
     Dates: start: 20180727
  4. LOPINAVIR W/RITONAVIR [Concomitant]
     Active Substance: LOPINAVIR\RITONAVIR
  5. MOXIFLOXACIN ORAL [Suspect]
     Active Substance: MOXIFLOXACIN
     Indication: PULMONARY TUBERCULOSIS
     Dosage: 800 MG, QD
     Route: 048
     Dates: start: 20180727
  6. PYRAZINAMIDE. [Suspect]
     Active Substance: PYRAZINAMIDE
     Indication: PULMONARY TUBERCULOSIS
     Dosage: 1 G, QD
     Route: 048
     Dates: start: 2016
  7. AMOXICILLIN W/CLAVULANIC ACID [Suspect]
     Active Substance: AMOXICILLIN\CLAVULANIC ACID
     Indication: PULMONARY TUBERCULOSIS
     Dosage: 375 MG, BID
     Route: 048
     Dates: start: 20180727
  8. PAS [Suspect]
     Active Substance: AMINOSALICYLIC ACID
     Indication: PULMONARY TUBERCULOSIS
     Dosage: 8 G, QD
     Route: 048
     Dates: start: 20180727
  9. LINEZOLID. [Suspect]
     Active Substance: LINEZOLID
     Indication: PULMONARY TUBERCULOSIS
     Dosage: 600 MG, QD
     Route: 048
     Dates: start: 20180727
  10. ONDANSETRON [Concomitant]
     Active Substance: ONDANSETRON
  11. PANADO [Concomitant]
     Active Substance: ACETAMINOPHEN
  12. TRUVADA [Concomitant]
     Active Substance: EMTRICITABINE\TENOFOVIR DISOPROXIL FUMARATE
  13. CODEINE PHOSPHATE [Concomitant]
     Active Substance: CODEINE PHOSPHATE

REACTIONS (1)
  - Haemoptysis [Fatal]

NARRATIVE: CASE EVENT DATE: 20180831
